FAERS Safety Report 7421018-0 (Version None)
Quarter: 2011Q2

REPORT INFORMATION
  Report Type: 
  Country: None (occurrence: None)
  Receive Date: 20110418
  Receipt Date: 20110412
  Transmission Date: 20111010
  Serious: Yes (Life-Threatening, Hospitalization, Other)
  Sender: FDA-Public Use
  Company Number: PHHY2011GB30084

PATIENT
  Age: 89 Year
  Sex: Male
  Weight: 46.2 kg

DRUGS (11)
  1. METHOTREXATE [Suspect]
     Indication: SERONEGATIVE ARTHRITIS
     Dosage: 10 MG, QW
     Dates: end: 20110317
  2. ASPIRIN AND DIPYRIDAMOLE [Concomitant]
  3. FERROUS FUMARATE [Concomitant]
  4. FOLIC ACID [Concomitant]
  5. RABEPRAZOLE SODIUM [Concomitant]
  6. MOVIPREP [Concomitant]
  7. TRAMADOL HYDROCHLORIDE [Concomitant]
  8. ADCAL-D3 [Concomitant]
  9. COSOPT [Concomitant]
  10. ISOSORBIDE MONONITRATE [Concomitant]
  11. METHOTREXATE [Concomitant]
     Indication: ARTHRITIS

REACTIONS (18)
  - WHITE BLOOD CELL COUNT DECREASED [None]
  - SYNCOPE [None]
  - WEIGHT DECREASED [None]
  - HAEMOLYSIS [None]
  - DIARRHOEA [None]
  - FALL [None]
  - FLUID INTAKE REDUCED [None]
  - NEOPLASM MALIGNANT [None]
  - BONE MARROW FAILURE [None]
  - MALAISE [None]
  - NEUTROPHIL COUNT DECREASED [None]
  - MYELODYSPLASTIC SYNDROME [None]
  - TOXICITY TO VARIOUS AGENTS [None]
  - RENAL FAILURE ACUTE [None]
  - PANCYTOPENIA [None]
  - SPLENOMEGALY [None]
  - NEUTROPENIC SEPSIS [None]
  - CONSTIPATION [None]
